FAERS Safety Report 4959062-5 (Version None)
Quarter: 2006Q1

REPORT INFORMATION
  Report Type: 
  Country: None (occurrence: None)
  Receive Date: 20060328
  Receipt Date: 20060310
  Transmission Date: 20060701
  Serious: Yes (Hospitalization)
  Sender: FDA-Public Use
  Company Number: 2006-00568

PATIENT
  Age: 60 Year
  Sex: Male

DRUGS (1)
  1. VELCADE [Suspect]
     Indication: WALDENSTROM'S MACROGLOBULINAEMIA
     Dosage: 1.3 MG/M2, IV BOLUS
     Route: 040
     Dates: start: 20060201, end: 20060201

REACTIONS (3)
  - INTERSTITIAL LUNG DISEASE [None]
  - PNEUMONITIS [None]
  - RESPIRATORY DISTRESS [None]
